FAERS Safety Report 11789024 (Version 1)
Quarter: 2015Q4

REPORT INFORMATION
  Report Type: Spontaneous
  Country: US (occurrence: None)
  Receive Date: 20151130
  Receipt Date: 20151130
  Transmission Date: 20160305
  Serious: Yes (Disabling)
  Sender: FDA-Public Use
  Company Number: None

PATIENT
  Age: 51 Year
  Sex: Female
  Weight: 66.23 kg

DRUGS (11)
  1. VITAMIN B6 [Concomitant]
     Active Substance: PYRIDOXINE HYDROCHLORIDE
  2. VITAMIN B12 [Concomitant]
     Active Substance: CYANOCOBALAMIN
  3. VITAMIN E [Concomitant]
     Active Substance: .ALPHA.-TOCOPHEROL
  4. VITAMIN A [Concomitant]
     Active Substance: VITAMIN A
  5. NIACIN. [Concomitant]
     Active Substance: NIACIN
  6. FLONASE [Suspect]
     Active Substance: FLUTICASONE PROPIONATE
     Indication: SINUS CONGESTION
     Dosage: 1 SPRAY
     Route: 045
     Dates: start: 20151027, end: 20151118
  7. IBUPROFEN. [Concomitant]
     Active Substance: IBUPROFEN
  8. FISH OIL [Concomitant]
     Active Substance: FISH OIL
  9. PRAVASTATIN SODIUM. [Concomitant]
     Active Substance: PRAVASTATIN SODIUM
  10. VITAMIN C [Concomitant]
     Active Substance: ASCORBIC ACID
  11. VITAMIN D3 [Concomitant]
     Active Substance: CHOLECALCIFEROL

REACTIONS (8)
  - Nausea [None]
  - No therapeutic response [None]
  - Paraesthesia [None]
  - Hypoaesthesia [None]
  - Balance disorder [None]
  - Paranasal sinus discomfort [None]
  - Dizziness [None]
  - Deafness [None]

NARRATIVE: CASE EVENT DATE: 20151120
